FAERS Safety Report 15505634 (Version 1)
Quarter: 2018Q4

REPORT INFORMATION
  Report Type: Report from Study
  Country: GR (occurrence: GR)
  Receive Date: 20181016
  Receipt Date: 20181016
  Transmission Date: 20190205
  Serious: Yes (Other)
  Sender: FDA-Public Use
  Company Number: GR-ACCORD-073218

PATIENT
  Age: 77 Year
  Sex: Female

DRUGS (9)
  1. DIGOXIN. [Concomitant]
     Active Substance: DIGOXIN
     Dates: start: 2010
  2. TRIATEC (RAMIPRIL) [Concomitant]
     Active Substance: RAMIPRIL
     Dates: start: 2006
  3. LEUCOVORIN. [Suspect]
     Active Substance: LEUCOVORIN
     Indication: COLORECTAL CANCER METASTATIC
     Dates: start: 20160913, end: 20161017
  4. LASIX [Concomitant]
     Active Substance: FUROSEMIDE
     Dates: start: 2011
  5. FLUOROURACIL. [Suspect]
     Active Substance: FLUOROURACIL
     Indication: COLORECTAL CANCER METASTATIC
     Dosage: 3500 MG: INTRAVENOUS CONTINUOUS 48 HOURS (DAY 1 TO DAY 2)
     Route: 040
     Dates: start: 20160913
  6. ERBITUX [Suspect]
     Active Substance: CETUXIMAB
     Indication: COLORECTAL CANCER METASTATIC
     Dosage: ALSO RECEIVED 390 MG/M2 FROM 01-NOV-2016 TO 19-APR-2017.
     Dates: start: 20161013
  7. ELIQUIS [Concomitant]
     Active Substance: APIXABAN
     Dates: start: 2011
  8. GRANULOCYTE COLONY STIMULATING [Concomitant]
     Active Substance: GRANULOCYTE COLONY-STIMULATING FACTOR NOS
     Dates: start: 20160915, end: 20160917
  9. OXALIPLATIN. [Suspect]
     Active Substance: OXALIPLATIN
     Indication: COLORECTAL CANCER METASTATIC
     Dates: start: 20160913, end: 20170419

REACTIONS (1)
  - Bradycardia [Recovered/Resolved]

NARRATIVE: CASE EVENT DATE: 20161014
